FAERS Safety Report 5952010-0 (Version None)
Quarter: 2008Q4

REPORT INFORMATION
  Report Type: 
  Country: None (occurrence: None)
  Receive Date: 20081113
  Receipt Date: 20071115
  Transmission Date: 20090506
  Serious: No
  Sender: FDA-Public Use
  Company Number: A0694777A

PATIENT
  Age: 44 Year
  Sex: Female

DRUGS (1)
  1. COREG [Suspect]
     Indication: HYPERTENSION
     Route: 048
     Dates: start: 20061101

REACTIONS (1)
  - RASH [None]
